FAERS Safety Report 17195696 (Version 1)
Quarter: 2019Q4

REPORT INFORMATION
  Report Type: Spontaneous
  Country: US (occurrence: US)
  Receive Date: 20191202
  Receipt Date: 20191202
  Transmission Date: 20200122
  Serious: Yes (Other)
  Sender: FDA-Public Use
  Company Number: None

PATIENT
  Age: 28 Year
  Sex: Female
  Weight: 117.03 kg

DRUGS (2)
  1. ALPRAZOLAM 0.5MG [Suspect]
     Active Substance: ALPRAZOLAM
     Indication: ANXIETY
     Dosage: ?          OTHER FREQUENCY:BID PRN;?
     Route: 048
     Dates: start: 20191001, end: 20191101
  2. ALPRAZOLAM 0.5MG [Suspect]
     Active Substance: ALPRAZOLAM
     Indication: PANIC DISORDER
     Dosage: ?          OTHER FREQUENCY:BID PRN;?
     Route: 048
     Dates: start: 20191001, end: 20191101

REACTIONS (3)
  - Rash [None]
  - Rash vesicular [None]
  - Swelling of eyelid [None]

NARRATIVE: CASE EVENT DATE: 20191022
